FAERS Safety Report 13954238 (Version 1)
Quarter: 2017Q3

REPORT INFORMATION
  Report Type: Spontaneous
  Country: US (occurrence: None)
  Receive Date: 20170910
  Receipt Date: 20170910
  Transmission Date: 20171128
  Serious: Yes (Hospitalization)
  Sender: FDA-Public Use
  Company Number: None

PATIENT
  Age: 45 Year
  Sex: Male

DRUGS (1)
  1. PHENOBARBITAL 64.8MG [Suspect]
     Active Substance: PHENOBARBITAL
     Indication: SEIZURE
     Dosage: 64.8 2QD PO
     Route: 048

REACTIONS (4)
  - Injury [None]
  - Road traffic accident [None]
  - Product substitution issue [None]
  - Seizure [None]

NARRATIVE: CASE EVENT DATE: 20170207
